FAERS Safety Report 10501734 (Version 1)
Quarter: 2014Q3

REPORT INFORMATION
  Report Type: Spontaneous
  Country: US (occurrence: None)
  Receive Date: 20140815
  Receipt Date: 20140815
  Transmission Date: 20150326
  Serious: Yes (Hospitalization, Other)
  Sender: FDA-Public Use
  Company Number: ADR-2013-01128

PATIENT
  Age: 40 Year
  Sex: Female

DRUGS (4)
  1. FENTANYL INTRATHECAL 2000 MCG/ML [Suspect]
     Active Substance: FENTANYL
     Dosage: 769 MCG/DAY
  2. DILAUDID [Suspect]
     Active Substance: HYDROMORPHONE HYDROCHLORIDE
  3. BUPIVACAINE [Suspect]
     Active Substance: BUPIVACAINE
     Dosage: 11.52 MG/DAY
  4. BACLOFEN INTRATHECAL [Suspect]
     Active Substance: BACLOFEN
     Indication: SPINAL PAIN

REACTIONS (1)
  - Drug withdrawal syndrome [None]
